FAERS Safety Report 14799267 (Version 2)
Quarter: 2018Q2

REPORT INFORMATION
  Report Type: Report from Study
  Country: JP (occurrence: JP)
  Receive Date: 20180424
  Receipt Date: 20180426
  Transmission Date: 20180711
  Serious: Yes (Hospitalization)
  Sender: FDA-Public Use
  Company Number: JP-EISAI MEDICAL RESEARCH-EC-2018-038292

PATIENT
  Age: 9 Year
  Sex: Female
  Weight: 20.7 kg

DRUGS (8)
  1. VIMPAT [Concomitant]
     Active Substance: LACOSAMIDE
  2. PERAMPANEL [Suspect]
     Active Substance: PERAMPANEL
     Route: 048
     Dates: start: 20171218, end: 20180114
  3. TOPINA [Concomitant]
     Active Substance: TOPIRAMATE
  4. PERAMPANEL [Suspect]
     Active Substance: PERAMPANEL
     Route: 048
     Dates: start: 20180205, end: 20180325
  5. PERAMPANEL [Suspect]
     Active Substance: PERAMPANEL
     Route: 048
     Dates: start: 20180326
  6. LAMICTAL [Concomitant]
     Active Substance: LAMOTRIGINE
  7. PERAMPANEL [Suspect]
     Active Substance: PERAMPANEL
     Route: 048
     Dates: start: 20180115, end: 20180204
  8. PERAMPANEL [Suspect]
     Active Substance: PERAMPANEL
     Indication: EPILEPSY
     Route: 048
     Dates: start: 20171211, end: 20171217

REACTIONS (1)
  - Gastroenteritis [Recovered/Resolved]

NARRATIVE: CASE EVENT DATE: 20180420
